FAERS Safety Report 19064394 (Version 1)
Quarter: 2021Q1

REPORT INFORMATION
  Report Type: Spontaneous
  Country: US (occurrence: US)
  Receive Date: 20210326
  Receipt Date: 20210326
  Transmission Date: 20210420
  Serious: No
  Sender: FDA-Public Use
  Company Number: US-CELGENEUS-USA-20210305464

PATIENT
  Sex: Male
  Weight: 66.28 kg

DRUGS (2)
  1. THALOMID [Suspect]
     Active Substance: THALIDOMIDE
     Indication: PULMONARY FIBROSIS
     Dosage: 100 MILLIGRAM
     Route: 048
     Dates: start: 201607
  2. THALOMID [Suspect]
     Active Substance: THALIDOMIDE
     Indication: OFF LABEL USE
     Dosage: 400 MILLIGRAM
     Route: 048

REACTIONS (1)
  - Cough [Unknown]
